FAERS Safety Report 8313037-7 (Version None)
Quarter: 2012Q2

REPORT INFORMATION
  Report Type: 
  Country: None (occurrence: None)
  Receive Date: 20120426
  Receipt Date: 20120418
  Transmission Date: 20120825
  Serious: Yes (Hospitalization)
  Sender: FDA-Public Use
  Company Number: US-BAYER-2011-060844

PATIENT
  Age: 21 Year
  Sex: Female
  Weight: 70.748 kg

DRUGS (6)
  1. IMITREX [Concomitant]
     Indication: PAIN
     Dosage: 25 MG, Q4HR
     Route: 048
     Dates: start: 20101109
  2. YASMIN [Suspect]
     Indication: CONTRACEPTION
     Dosage: UNK
     Dates: start: 20100901, end: 20101101
  3. CAFFEINE+BUTALBITAL+ASPIRIN [Concomitant]
     Dosage: 1 TAB EVERY 4-6 OR AS NEEDED
     Route: 048
     Dates: start: 20101108
  4. MEDROXYPROGESTERONE ACETATE [Concomitant]
     Dosage: UNK
     Dates: start: 20101108
  5. IMITREX [Concomitant]
     Dosage: 6 MG, UNK
     Dates: start: 20101109
  6. DOCUSATE SODIUM [Concomitant]
     Dosage: 100 MG, BID
     Route: 048
     Dates: start: 20101108

REACTIONS (3)
  - EMOTIONAL DISTRESS [None]
  - CEREBROVASCULAR ACCIDENT [None]
  - PAIN [None]
